FAERS Safety Report 7690556-8 (Version None)
Quarter: 2011Q3

REPORT INFORMATION
  Report Type: 
  Country: None (occurrence: None)
  Receive Date: 20110818
  Receipt Date: 20110815
  Transmission Date: 20111222
  Serious: Yes (Congenital Anomaly)
  Sender: FDA-Public Use
  Company Number: US-PFIZER INC-2011013532

PATIENT
  Sex: Male

DRUGS (6)
  1. SERTRALINE HYDROCHLORIDE [Suspect]
     Indication: DEPRESSION
     Dosage: 25 MG, DAILY
     Route: 064
     Dates: start: 20010101
  2. PRENATAL VITAMINS [Concomitant]
     Dosage: UNK
     Route: 064
     Dates: start: 20090101
  3. AMBIEN [Concomitant]
     Indication: INSOMNIA
     Dosage: UNK
     Route: 064
  4. CLOMID [Concomitant]
     Indication: OVULATION DISORDER
     Dosage: UNK
     Route: 064
     Dates: start: 20100101
  5. SERTRALINE HYDROCHLORIDE [Suspect]
     Indication: ANXIETY
     Dosage: UNK
     Route: 064
  6. FOLIC ACID [Concomitant]
     Dosage: UNK
     Route: 064

REACTIONS (2)
  - FALLOT'S TETRALOGY [None]
  - MATERNAL EXPOSURE DURING PREGNANCY [None]
